FAERS Safety Report 18249034 (Version 1)
Quarter: 2020Q3

REPORT INFORMATION
  Report Type: Other
  Country: AR (occurrence: AR)
  Receive Date: 20200909
  Receipt Date: 20200909
  Transmission Date: 20201103
  Serious: Yes (Life-Threatening)
  Sender: FDA-Public Use
  Company Number: AR-ROCHE-2673753

PATIENT
  Age: 3 Month
  Sex: Male
  Weight: 3.82 kg

DRUGS (3)
  1. TAMOXIFEN [Concomitant]
     Active Substance: TAMOXIFEN
     Dosage: IT WAS STOPPED AT 16 WEEKS GESTATIONAL AGE.
     Route: 064
  2. DOCETAXEL. [Concomitant]
     Active Substance: DOCETAXEL
     Dosage: CONTINUED UNTIL 32 WEEKS OF GESTATIONAL AGE
     Route: 064
  3. TRASTUZUMAB. [Suspect]
     Active Substance: TRASTUZUMAB
     Indication: PRODUCT USED FOR UNKNOWN INDICATION
     Dosage: IT WAS STOPPED AT 16 WEEKS GESTATIONAL AGE.
     Route: 064

REACTIONS (2)
  - Apparent life threatening event [Recovered/Resolved]
  - Foetal exposure during pregnancy [Unknown]
